FAERS Safety Report 8460609 (Version 2)
Quarter: 2013Q1

REPORT INFORMATION
  Report Type: Spontaneous
  Country: SE (occurrence: None)
  Receive Date: 20120301
  Receipt Date: 20130329
  Transmission Date: 20140127
  Serious: Yes (Hospitalization)
  Sender: FDA-Public Use
  Company Number: 2012031334

PATIENT
  Age: 26 Year
  Sex: Male

DRUGS (2)
  1. PRIVIGEN [Suspect]
     Indication: AUTONOMIC NEUROPATHY
     Dosage: 100MG/ML  INTRAVENOUS (NOT OTHERWISE SPECIFIED)
     Route: 042
     Dates: start: 20110912, end: 20110916
  2. KIOVIG [Suspect]
     Indication: AUTONOMIC NEUROPATHY
     Dosage: 100MG/ML
     Route: 042
     Dates: start: 2011, end: 20110916

REACTIONS (6)
  - Nephrotic syndrome [None]
  - Blood creatinine increased [None]
  - Blood urea increased [None]
  - Blood albumin decreased [None]
  - Off label use [None]
  - Renal failure [None]
